FAERS Safety Report 8070508-9 (Version None)
Quarter: 2012Q1

REPORT INFORMATION
  Report Type: 
  Country: None (occurrence: None)
  Receive Date: 20120125
  Receipt Date: 20120113
  Transmission Date: 20120608
  Serious: Yes (Other)
  Sender: FDA-Public Use
  Company Number: US-RB-033294-12

PATIENT
  Age: 40 Year
  Sex: Male

DRUGS (1)
  1. MUCINEX D [Suspect]
     Indication: PRODUCT USED FOR UNKNOWN INDICATION
     Dosage: 2 TABS ON THE 10TH AT 5PM AND 2 TABS THE NEXT MORNING AT 5AM
     Route: 048
     Dates: start: 20120110

REACTIONS (2)
  - PROSTATOMEGALY [None]
  - DYSURIA [None]
